FAERS Safety Report 21520281 (Version 1)
Quarter: 2022Q4

REPORT INFORMATION
  Report Type: Spontaneous
  Country: FR (occurrence: FR)
  Receive Date: 20221028
  Receipt Date: 20221028
  Transmission Date: 20230112
  Serious: Yes (Hospitalization)
  Sender: FDA-Public Use
  Company Number: None

PATIENT
  Age: 80 Year
  Sex: Male
  Weight: 74 kg

DRUGS (4)
  1. MEKINIST [Suspect]
     Active Substance: TRAMETINIB DIMETHYL SULFOXIDE
     Indication: Metastatic malignant melanoma
     Dosage: 1 DOSAGE FORM, QD
     Route: 048
     Dates: start: 20220502, end: 20220928
  2. KARDEGIC [Suspect]
     Active Substance: ASPIRIN DL-LYSINE
     Indication: Transient ischaemic attack
     Dosage: 1 DOSAGE FORM, QD
     Route: 048
     Dates: end: 20221003
  3. BISOPROLOL [Concomitant]
     Active Substance: BISOPROLOL
     Indication: Product used for unknown indication
     Dosage: 1 DOSAGE FORM, QD
     Route: 048
     Dates: end: 20220929
  4. TETRALYSAL [Concomitant]
     Indication: Product used for unknown indication
     Dosage: UNK
     Route: 065

REACTIONS (4)
  - Gastrointestinal haemorrhage [Recovering/Resolving]
  - Gastric ulcer [Not Recovered/Not Resolved]
  - Oesophageal ulcer [Not Recovered/Not Resolved]
  - Duodenal ulcer [Not Recovered/Not Resolved]

NARRATIVE: CASE EVENT DATE: 20221003
